FAERS Safety Report 12487491 (Version 2)
Quarter: 2016Q3

REPORT INFORMATION
  Report Type: Spontaneous
  Country: US (occurrence: US)
  Receive Date: 20160622
  Receipt Date: 20160718
  Transmission Date: 20161109
  Serious: Yes (Death)
  Sender: FDA-Public Use
  Company Number: US-BAUSCH-BL-2016-014140

PATIENT
  Age: 57 Year
  Sex: Male

DRUGS (5)
  1. PROVENGE [Suspect]
     Active Substance: SIPULEUCEL-T
     Route: 042
     Dates: start: 20110728, end: 20110728
  2. PROVENGE [Suspect]
     Active Substance: SIPULEUCEL-T
     Indication: PROSTATE CANCER
     Route: 042
     Dates: start: 20110623, end: 20110623
  3. BUPRON [Concomitant]
     Active Substance: BUPROPION HYDROCHLORIDE
     Indication: PROSTATE CANCER
  4. PROVENGE [Suspect]
     Active Substance: SIPULEUCEL-T
     Route: 042
     Dates: start: 20110812, end: 20110812
  5. TAXOL [Concomitant]
     Active Substance: PACLITAXEL
     Indication: PROSTATE CANCER

REACTIONS (2)
  - Renal disorder [Fatal]
  - Prostate cancer stage IV [Fatal]

NARRATIVE: CASE EVENT DATE: 201310
